FAERS Safety Report 23718860 (Version 1)
Quarter: 2024Q2

REPORT INFORMATION
  Report Type: Spontaneous
  Country: US (occurrence: US)
  Receive Date: 20240408
  Receipt Date: 20240408
  Transmission Date: 20240716
  Serious: No
  Sender: FDA-Public Use
  Company Number: US-TOLMAR, INC.-24US047394

PATIENT
  Age: 21 Year
  Sex: Male

DRUGS (2)
  1. KETOCONAZOLE [Suspect]
     Active Substance: KETOCONAZOLE
     Indication: Alopecia
     Dosage: UNK UNK, 3/WEEK
     Route: 003
     Dates: start: 2023, end: 2023
  2. FINASTERIDE [Suspect]
     Active Substance: FINASTERIDE
     Indication: Alopecia
     Dosage: UNK UNK, QOD
     Dates: start: 2023, end: 2023

REACTIONS (4)
  - Male sexual dysfunction [Recovering/Resolving]
  - Insomnia [Recovering/Resolving]
  - Blunted affect [Recovering/Resolving]
  - Off label use [Unknown]

NARRATIVE: CASE EVENT DATE: 20230101
